FAERS Safety Report 5378739-3 (Version None)
Quarter: 2007Q3

REPORT INFORMATION
  Report Type: 
  Country: None (occurrence: None)
  Receive Date: 20070705
  Receipt Date: 20070620
  Transmission Date: 20080115
  Serious: Yes (Hospitalization)
  Sender: FDA-Public Use
  Company Number: B0477017A

PATIENT
  Age: 44 Year
  Sex: Female

DRUGS (6)
  1. AUGMENTIN '125' [Suspect]
     Route: 048
     Dates: start: 20060729, end: 20060731
  2. LOVENOX [Concomitant]
     Route: 058
     Dates: start: 20060729, end: 20060731
  3. PERFALGAN [Concomitant]
     Route: 042
     Dates: start: 20060729, end: 20060731
  4. ACUPAN [Concomitant]
     Route: 042
     Dates: start: 20060729, end: 20060731
  5. TRAMADOL HCL [Concomitant]
     Route: 048
     Dates: start: 20060729, end: 20060731
  6. IODINATED CONTRAST MEDIUM [Concomitant]
     Route: 065

REACTIONS (3)
  - ANGIOEDEMA [None]
  - DYSPNOEA [None]
  - URTICARIA [None]
